FAERS Safety Report 5224383-8 (Version None)
Quarter: 2007Q1

REPORT INFORMATION
  Report Type: 
  Country: None (occurrence: None)
  Receive Date: 20070130
  Receipt Date: 20070108
  Transmission Date: 20070707
  Serious: Yes (Other)
  Sender: FDA-Public Use
  Company Number: US-PFIZER INC-2005068169

PATIENT
  Sex: Female
  Weight: 59.9 kg

DRUGS (8)
  1. BEXTRA [Suspect]
     Indication: FIBROMYALGIA
     Route: 048
     Dates: start: 20020801, end: 20030201
  2. VIOXX [Suspect]
     Indication: ILL-DEFINED DISORDER
  3. ALEVE [Concomitant]
  4. TENORMIN [Concomitant]
  5. TRAMADOL HCL [Concomitant]
  6. NEXIUM [Concomitant]
  7. SKELAXIN [Concomitant]
  8. ZOLOFT [Concomitant]

REACTIONS (3)
  - AMNESIA [None]
  - CEREBROVASCULAR ACCIDENT [None]
  - NERVE INJURY [None]
